FAERS Safety Report 4803668-0 (Version None)
Quarter: 2005Q4

REPORT INFORMATION
  Report Type: 
  Country: None (occurrence: None)
  Receive Date: 20051017
  Receipt Date: 20050805
  Transmission Date: 20060501
  Serious: Yes (Other)
  Sender: FDA-Public Use
  Company Number: HQWYE830310AUG05

PATIENT
  Age: 60 Year
  Sex: Male
  Weight: 87.17 kg

DRUGS (9)
  1. ALAVERT [Suspect]
     Indication: VERTIGO
     Dosage: TABLET 1X PER 1 DAY, ORAL
     Route: 048
     Dates: start: 20050701, end: 20050701
  2. TUMS (CALCIUM CARBONATE/MAGNESIUM CARBONATE/MAGNESIUM TRISILICATE) [Concomitant]
  3. UNSPECIFIED VITAMINS (UNSPECIFIED VITAMINS) [Concomitant]
  4. L-LYSINE (LYSINE) [Concomitant]
  5. GLUCOSAMINE SULFATE (GLUCOSAMINE SULFATE) [Concomitant]
  6. BABYPRIN (ACETYLSALICYLIC ACID) [Concomitant]
  7. LANTUS [Concomitant]
  8. AMARYL [Concomitant]
  9. UNSPECIFIED DECONGESTANT (UNSPECIFIED DECONGESTANT) [Concomitant]

REACTIONS (2)
  - LETHARGY [None]
  - SOMNOLENCE [None]
